FAERS Safety Report 5740089-0 (Version None)
Quarter: 2008Q2

REPORT INFORMATION
  Report Type: 
  Country: None (occurrence: None)
  Receive Date: 20080516
  Receipt Date: 20080505
  Transmission Date: 20081010
  Serious: Yes (Other)
  Sender: FDA-Public Use
  Company Number: HQWYE392622JUL05

PATIENT
  Sex: Female

DRUGS (2)
  1. PREMPRO [Suspect]
     Indication: HORMONE REPLACEMENT THERAPY
     Dosage: UNSPECIFIED
     Route: 048
     Dates: start: 19970604, end: 20021111
  2. CONJUGATED ESTROGENS [Suspect]
     Indication: MENOPAUSE
     Dosage: UNKNOWN
     Dates: start: 19970604, end: 20021114

REACTIONS (1)
  - BREAST CANCER METASTATIC [None]
